FAERS Safety Report 9296592 (Version 2)
Quarter: 2014Q3

REPORT INFORMATION
  Report Type: Spontaneous
  Country: US (occurrence: US)
  Receive Date: 20130517
  Receipt Date: 20140704
  Transmission Date: 20150326
  Serious: No
  Sender: FDA-Public Use
  Company Number: US-B.I. PHARMACEUTICALS,INC./RIDGEFIELD-2013-BI-13619BP

PATIENT
  Age: 52 Year
  Sex: Female
  Weight: 115 kg

DRUGS (32)
  1. COMBIVENT [Suspect]
     Active Substance: ALBUTEROL SULFATE\IPRATROPIUM BROMIDE
     Indication: ASTHMA
     Dosage: STRENGTH: 18 MCG / 103 MCG; DAILY DOSE: 72 MCG / 412 MCG
     Route: 055
     Dates: start: 2003, end: 20130509
  2. FOLIC ACID. [Concomitant]
     Active Substance: FOLIC ACID
     Dosage: 1 MG
     Route: 048
  3. FLEXERIL [Concomitant]
     Active Substance: CYCLOBENZAPRINE HYDROCHLORIDE
     Dosage: 10 MG
     Route: 065
  4. XANAX [Concomitant]
     Active Substance: ALPRAZOLAM
     Route: 048
  5. SYNTHROID [Concomitant]
     Active Substance: LEVOTHYROXINE SODIUM
     Dosage: 0.5 MG
     Route: 065
  6. METHOTREXATE [Concomitant]
     Active Substance: METHOTREXATE
     Dosage: FORMULATION: INJECTABLE; DOSE PER APPLICATION: 50MG (25MG/ML)
     Route: 058
  7. ANAPROX DS [Concomitant]
     Active Substance: NAPROXEN SODIUM
     Route: 065
  8. LYRICA [Concomitant]
     Active Substance: PREGABALIN
     Dosage: 100 MG
     Route: 048
  9. BIEST7/PROG100/TEST10 [Concomitant]
     Dosage: 1 ANZ
     Route: 048
  10. SINGULAIR [Concomitant]
     Active Substance: MONTELUKAST SODIUM
     Dosage: 10 MG
     Route: 048
  11. COMBIVENT [Suspect]
     Active Substance: ALBUTEROL SULFATE\IPRATROPIUM BROMIDE
     Indication: ASTHMA
     Dosage: STRENGTH: 18 MCG / 103 MCG
     Route: 055
     Dates: start: 20130514, end: 20130828
  12. VITAMIN D [Concomitant]
     Active Substance: CHOLECALCIFEROL
     Dosage: 7142.8571 U
     Route: 048
  13. CLARINEX [Concomitant]
     Active Substance: DESLORATADINE
     Dosage: 5 MG
     Route: 065
  14. GABA/AMITRIP/LIDO/KETO/FLURBI/BACLO 6/4/5/410/2% IN LIDO [Concomitant]
     Indication: PAIN
     Dosage: DOSE PER APPLICATION: 1.5-3 GRAMS
     Route: 065
  15. RELAFEN [Concomitant]
     Active Substance: NABUMETONE
     Indication: ARTHRITIS
     Dosage: 1500 MG
     Route: 065
  16. COMBIVENT [Suspect]
     Active Substance: ALBUTEROL SULFATE\IPRATROPIUM BROMIDE
     Indication: ASTHMA
     Dosage: STRENGTH: 20 MCG / 100 MCG;DAILY DOSE: 80MCG/400MCG
     Route: 055
     Dates: start: 20130510, end: 20130513
  17. PLAQUENIL [Concomitant]
     Active Substance: HYDROXYCHLOROQUINE SULFATE
     Dosage: 400 MG
     Route: 048
  18. PHENERGAN [Concomitant]
     Active Substance: PROMETHAZINE HYDROCHLORIDE
     Route: 048
  19. EVOXAC [Concomitant]
     Active Substance: CEVIMELINE HYDROCHLORIDE
     Indication: DRY MOUTH
     Dosage: 90 MG
     Route: 065
  20. ROBAXIN [Concomitant]
     Active Substance: METHOCARBAMOL
     Indication: ARTHRITIS
     Route: 065
  21. ROBAXIN [Concomitant]
     Active Substance: METHOCARBAMOL
     Indication: PAIN
  22. ASTELIN [Concomitant]
     Active Substance: AZELASTINE HYDROCHLORIDE
     Dosage: 4 ANZ
     Route: 045
  23. TOPICAL PAIN GEL (UNKNOWN) [Concomitant]
     Indication: PAIN
     Route: 061
  24. NEXIUM [Concomitant]
     Active Substance: ESOMEPRAZOLE MAGNESIUM
     Dosage: 80 MG
     Route: 048
  25. VIACTIV CALCIUM [Concomitant]
     Indication: MINERAL SUPPLEMENTATION
     Dosage: 1500 MG
     Route: 048
  26. VITAMIN B12 [Concomitant]
     Active Substance: CYANOCOBALAMIN
     Dosage: FORMULATION: INJECTION; DOSE PER APPLICATION: 1000MCG/ML
     Route: 065
  27. PULMICORT TURBUHALER [Concomitant]
     Active Substance: BUDESONIDE
     Dosage: 360 MCG
     Route: 045
  28. RELAFEN [Concomitant]
     Active Substance: NABUMETONE
     Indication: PAIN
  29. FLUTICASONE SPRAY [Concomitant]
     Dosage: FORMULATION: SPRAY
     Route: 065
  30. LORTAB [Concomitant]
     Active Substance: ACETAMINOPHEN\HYDROCODONE BITARTRATE
     Indication: PAIN
     Route: 048
  31. SKELAXIN [Concomitant]
     Active Substance: METAXALONE
     Dosage: 2400 MG
     Route: 048
  32. AMBIEN CR [Concomitant]
     Active Substance: ZOLPIDEM TARTRATE
     Dosage: 12.5 MG
     Route: 048

REACTIONS (3)
  - Dyspnoea [Recovered/Resolved]
  - Drug ineffective [Unknown]
  - Chest discomfort [Recovered/Resolved]

NARRATIVE: CASE EVENT DATE: 20130510
